FAERS Safety Report 8893448 (Version 2)
Quarter: 2013Q1

REPORT INFORMATION
  Report Type: Spontaneous
  Country: US (occurrence: US)
  Receive Date: 20121108
  Receipt Date: 20130107
  Transmission Date: 20140127
  Serious: Yes (Hospitalization)
  Sender: FDA-Public Use
  Company Number: US-BAYER-2012-115941

PATIENT
  Age: 32 Year
  Sex: Female
  Weight: 56.69 kg

DRUGS (2)
  1. YAZ [Suspect]
     Dosage: UNK
     Dates: start: 2003, end: 200808
  2. YASMIN [Suspect]
     Dosage: UNK
     Dates: start: 2003, end: 200808

REACTIONS (8)
  - Cerebrovascular accident [None]
  - General physical health deterioration [None]
  - Injury [None]
  - Pain [None]
  - Emotional distress [None]
  - Anhedonia [None]
  - Anxiety [None]
  - Pain [None]
